FAERS Safety Report 6525573-4 (Version None)
Quarter: 2010Q1

REPORT INFORMATION
  Report Type: 
  Country: None (occurrence: None)
  Receive Date: 20100104
  Receipt Date: 20091223
  Transmission Date: 20100710
  Serious: Yes (Other)
  Sender: FDA-Public Use
  Company Number: BE-PFIZER INC-2009303326

PATIENT
  Age: 57 Year
  Sex: Male
  Weight: 85 kg

DRUGS (3)
  1. CELEBREX [Suspect]
     Indication: MUSCULOSKELETAL PAIN
     Dosage: 200 MG, 1X/DAY
     Route: 048
     Dates: start: 20090928, end: 20090930
  2. LIPITOR [Concomitant]
     Route: 048
  3. CRESTOR [Concomitant]
     Dosage: 10 MG, 1X/DAY
     Route: 048

REACTIONS (6)
  - JAUNDICE [None]
  - NAUSEA [None]
  - PRURITUS [None]
  - THYROID DISORDER [None]
  - VOMITING [None]
  - WEIGHT DECREASED [None]
